FAERS Safety Report 18895314 (Version 2)
Quarter: 2021Q1

REPORT INFORMATION
  Report Type: Spontaneous
  Country: US (occurrence: US)
  Receive Date: 20210215
  Receipt Date: 20210322
  Transmission Date: 20210420
  Serious: No
  Sender: FDA-Public Use
  Company Number: US-TEVA-2021-US-1879090

PATIENT
  Age: 67 Year
  Sex: Male
  Weight: 115.67 kg

DRUGS (1)
  1. ALBUTEROL SULFATE HFA [Suspect]
     Active Substance: ALBUTEROL SULFATE
     Indication: ASTHMA
     Dosage: FORM OF ADMIN: INHALATION AEROSOL, DOSE: 90 MCG PER ACTUATION
     Route: 055

REACTIONS (5)
  - Dyspnoea [Unknown]
  - Product taste abnormal [Unknown]
  - Drug ineffective [Unknown]
  - Lung disorder [Recovered/Resolved]
  - Product odour abnormal [Unknown]

NARRATIVE: CASE EVENT DATE: 2021
